FAERS Safety Report 5527779-X (Version None)
Quarter: 2007Q4

REPORT INFORMATION
  Report Type: 
  Country: None (occurrence: None)
  Receive Date: 20071128
  Receipt Date: 20071119
  Transmission Date: 20080405
  Serious: Yes (Other)
  Sender: FDA-Public Use
  Company Number: AU-JNJFOC-20071002291

PATIENT
  Sex: Female

DRUGS (3)
  1. TOPAMAX [Suspect]
     Indication: ANALGESIA
     Dosage: STARTED SIX WEEKS AGO
  2. MESTINON [Concomitant]
  3. AVAPRO [Concomitant]

REACTIONS (7)
  - EAR CONGESTION [None]
  - EAR INFECTION [None]
  - LYMPHADENOPATHY [None]
  - NASAL CONGESTION [None]
  - RENAL FAILURE [None]
  - SINUSITIS [None]
  - THYROID MASS [None]
